FAERS Safety Report 17053816 (Version 4)
Quarter: 2020Q1

REPORT INFORMATION
  Report Type: Spontaneous
  Country: UY (occurrence: UY)
  Receive Date: 20191120
  Receipt Date: 20200319
  Transmission Date: 20200409
  Serious: Yes (Death, Hospitalization, Other)
  Sender: FDA-Public Use
  Company Number: UY-INCYTE CORPORATION-2019IN011372

PATIENT

DRUGS (6)
  1. JAKAVI [Suspect]
     Active Substance: RUXOLITINIB
     Indication: MYELOFIBROSIS
     Dosage: 20 MG, Q12H
     Route: 048
     Dates: start: 2019
  2. JAKAVI [Suspect]
     Active Substance: RUXOLITINIB
     Dosage: 10 MG, Q12H
     Route: 048
     Dates: start: 20191003, end: 20191107
  3. ALLOPURINOL. [Concomitant]
     Active Substance: ALLOPURINOL
     Indication: PRODUCT USED FOR UNKNOWN INDICATION
     Dosage: UNK
     Route: 065
  4. INSULIN [Concomitant]
     Active Substance: INSULIN NOS
     Indication: TYPE 2 DIABETES MELLITUS
     Dosage: UNK
     Route: 065
  5. JAKAVI [Suspect]
     Active Substance: RUXOLITINIB
     Dosage: UNK
     Route: 048
     Dates: start: 20200210
  6. AMLODIPINE [Concomitant]
     Active Substance: AMLODIPINE BESYLATE
     Indication: HYPERTENSION
     Dosage: UNK
     Route: 065

REACTIONS (32)
  - Gallbladder enlargement [Unknown]
  - Eosinophil percentage decreased [Unknown]
  - Splenomegaly [Unknown]
  - Squamous cell carcinoma [Unknown]
  - Diverticulum intestinal [Unknown]
  - Blood creatinine increased [Unknown]
  - Haematocrit decreased [Unknown]
  - Red blood cell count decreased [Unknown]
  - Acute phase reaction [Unknown]
  - C-reactive protein increased [Unknown]
  - Cyst [Unknown]
  - Arthropathy [Unknown]
  - Pulmonary mass [Unknown]
  - Neutrophil count increased [Unknown]
  - Bronchial carcinoma [Unknown]
  - Cardiomegaly [Unknown]
  - Pneumothorax [Unknown]
  - Lymphocyte percentage decreased [Unknown]
  - Pain in extremity [Unknown]
  - Aortic arteriosclerosis [Unknown]
  - Blood urea increased [Unknown]
  - Anaemia [Unknown]
  - Pleural effusion [Unknown]
  - Eosinophil count decreased [Unknown]
  - Portal vein dilatation [Unknown]
  - Bladder dilatation [Unknown]
  - Emphysema [Unknown]
  - Lung neoplasm malignant [Unknown]
  - Death [Fatal]
  - Hyperkalaemia [Unknown]
  - Oedema peripheral [Unknown]
  - Hepatic vein dilatation [Unknown]

NARRATIVE: CASE EVENT DATE: 20191111
